FAERS Safety Report 11302521 (Version 22)
Quarter: 2017Q2

REPORT INFORMATION
  Report Type: Spontaneous
  Country: US (occurrence: US)
  Receive Date: 20150723
  Receipt Date: 20170504
  Transmission Date: 20170829
  Serious: Yes (Hospitalization, Other)
  Sender: FDA-Public Use
  Company Number: US-JNJFOC-20150716495

PATIENT
  Age: 60 Year
  Sex: Male
  Weight: 102 kg

DRUGS (21)
  1. FLOMAX [Suspect]
     Active Substance: TAMSULOSIN HYDROCHLORIDE
     Indication: MICTURITION DISORDER
     Route: 048
     Dates: start: 2014
  2. MIDODRINE [Concomitant]
     Active Substance: MIDODRINE
     Route: 048
  3. GLIPIZIDE. [Concomitant]
     Active Substance: GLIPIZIDE
  4. IMBRUVICA [Suspect]
     Active Substance: IBRUTINIB
     Indication: LEUKAEMIA
     Route: 048
  5. IMBRUVICA [Suspect]
     Active Substance: IBRUTINIB
     Indication: LEUKAEMIA
     Dosage: INITIATED 1 TO 1.5 YEARS PRIOR TO THIS REPORT
     Route: 048
     Dates: start: 20141001
  6. PROZAC [Concomitant]
     Active Substance: FLUOXETINE HYDROCHLORIDE
     Route: 048
  7. GLYBURIDE. [Concomitant]
     Active Substance: GLYBURIDE
  8. GABAPENTIN. [Concomitant]
     Active Substance: GABAPENTIN
     Indication: NEUROPATHY PERIPHERAL
     Dosage: EVERY 8 HRS
  9. BABY ASPIRIN [Concomitant]
     Active Substance: ASPIRIN
  10. AMITRIPTYLINE [Concomitant]
     Active Substance: AMITRIPTYLINE
     Route: 048
  11. LOSARTAN. [Concomitant]
     Active Substance: LOSARTAN
     Indication: HYPERTENSION
     Dosage: 1 TABLET, QD
     Route: 048
  12. IMBRUVICA [Suspect]
     Active Substance: IBRUTINIB
     Indication: CHRONIC LYMPHOCYTIC LEUKAEMIA
     Dosage: INITIATED 1 TO 1.5 YEARS PRIOR TO THIS REPORT
     Route: 048
     Dates: start: 20141001
  13. ASPIRIN. [Concomitant]
     Active Substance: ASPIRIN
  14. IMBRUVICA [Suspect]
     Active Substance: IBRUTINIB
     Indication: CHRONIC LYMPHOCYTIC LEUKAEMIA
     Route: 048
  15. IMBRUVICA [Suspect]
     Active Substance: IBRUTINIB
     Indication: CHRONIC LYMPHOCYTIC LEUKAEMIA
     Dosage: UNK
     Route: 048
  16. NOVOLIN R [Concomitant]
     Active Substance: INSULIN HUMAN
     Indication: DIABETES MELLITUS
  17. IMBRUVICA [Suspect]
     Active Substance: IBRUTINIB
     Indication: LEUKAEMIA
     Dosage: UNK
     Route: 048
  18. IMBRUVICA [Suspect]
     Active Substance: IBRUTINIB
     Indication: LEUKAEMIA
     Dosage: UNK
     Route: 048
  19. FLUOXETINE [Concomitant]
     Active Substance: FLUOXETINE HYDROCHLORIDE
  20. IMBRUVICA [Suspect]
     Active Substance: IBRUTINIB
     Indication: CHRONIC LYMPHOCYTIC LEUKAEMIA
     Dosage: UNK
     Route: 048
  21. NOVOLIN N [Concomitant]
     Active Substance: INSULIN HUMAN
     Dosage: UNK

REACTIONS (17)
  - Vasodilatation [Unknown]
  - Dizziness [Unknown]
  - Rhinitis [Unknown]
  - Injury [Unknown]
  - Epistaxis [Not Recovered/Not Resolved]
  - Thermal burn [Unknown]
  - Limb injury [Unknown]
  - Dysuria [Not Recovered/Not Resolved]
  - Blood glucose increased [Recovering/Resolving]
  - Loss of consciousness [Not Recovered/Not Resolved]
  - Localised infection [Unknown]
  - Lip blister [Unknown]
  - Parasomnia [Unknown]
  - Sensory loss [Not Recovered/Not Resolved]
  - Blood glucose decreased [Not Recovered/Not Resolved]
  - Onychomycosis [Not Recovered/Not Resolved]
  - Nocturia [Not Recovered/Not Resolved]

NARRATIVE: CASE EVENT DATE: 2015
